FAERS Safety Report 9615332 (Version 1)
Quarter: 2013Q4

REPORT INFORMATION
  Report Type: Spontaneous
  Country: US (occurrence: None)
  Receive Date: 20131010
  Receipt Date: 20131010
  Transmission Date: 20140711
  Serious: Yes (Hospitalization)
  Sender: FDA-Public Use
  Company Number: None

PATIENT
  Age: 68 Year
  Sex: Female
  Weight: 62.8 kg

DRUGS (1)
  1. CEFEPIME [Suspect]
     Indication: MASTOIDITIS
     Dosage: 2 GRAM, Q12H, PICC

REACTIONS (2)
  - Mental status changes [None]
  - Renal failure chronic [None]
